FAERS Safety Report 24722483 (Version 2)
Quarter: 2025Q3

REPORT INFORMATION
  Report Type: Spontaneous
  Country: EU (occurrence: EU)
  Receive Date: 20241211
  Receipt Date: 20250803
  Transmission Date: 20251020
  Serious: Yes (Other)
  Sender: ALEXION PHARMACEUTICALS
  Company Number: EU-009507513-2412DEU002349

PATIENT
  Age: 59 Year
  Sex: Male

DRUGS (2)
  1. LYNPARZA [Suspect]
     Active Substance: OLAPARIB
     Indication: Hormone-refractory prostate cancer
     Dosage: 300 MG TWICE (2X) DAILY
     Dates: start: 202411
  2. ABIRATERONE [Suspect]
     Active Substance: ABIRATERONE
     Indication: Hormone-refractory prostate cancer
     Route: 065

REACTIONS (7)
  - Malignant neoplasm progression [Unknown]
  - Radiotherapy [Unknown]
  - Haemoglobin abnormal [Unknown]
  - Blood lactate dehydrogenase increased [Unknown]
  - Blood alkaline phosphatase increased [Unknown]
  - Blood cholinesterase increased [Unknown]
  - Vomiting [Unknown]
